FAERS Safety Report 7137039 (Version 2)
Quarter: 2013Q1

REPORT INFORMATION
  Report Type: Spontaneous
  Country: US (occurrence: US)
  Receive Date: 20091002
  Receipt Date: 20130211
  Transmission Date: 20140127
  Serious: No
  Sender: FDA-Public Use
  Company Number: US-ASTRAZENECA-2004UW03075

PATIENT
  Age: 76 Year
  Sex: Female
  Weight: 87.5 kg

DRUGS (13)
  1. ARIMIDEX [Suspect]
     Indication: BREAST CANCER
     Route: 048
     Dates: start: 200402, end: 20090119
  2. ARIMIDEX [Suspect]
     Indication: BREAST CANCER
     Route: 048
     Dates: start: 20090120
  3. CRESTOR [Suspect]
     Indication: BLOOD CHOLESTEROL ABNORMAL
     Route: 048
     Dates: start: 201207
  4. LISINOPRIL [Suspect]
     Indication: HYPERTENSION
     Dosage: DAILY
     Route: 048
     Dates: start: 2001
  5. LISINOPRIL [Suspect]
     Indication: HYPERTENSION
     Dosage: DAILY
     Route: 048
     Dates: start: 2001
  6. FISH OIL [Suspect]
     Route: 048
     Dates: start: 20130115, end: 20130116
  7. LIPITOR [Concomitant]
     Indication: BLOOD CHOLESTEROL ABNORMAL
  8. XANAX [Concomitant]
     Indication: ANXIETY
  9. TYLENOL [Concomitant]
     Indication: MYALGIA
  10. SIMVASTATIN [Concomitant]
     Indication: BLOOD CHOLESTEROL INCREASED
  11. ZANTAC [Concomitant]
     Indication: GASTROINTESTINAL DISORDER
  12. RANITIDINE [Concomitant]
     Indication: GASTRIC ULCER
  13. ASPIRIN [Concomitant]

REACTIONS (13)
  - Abdominal distension [Unknown]
  - Palpitations [Unknown]
  - Heart rate irregular [Unknown]
  - Dysphonia [Unknown]
  - Back pain [Unknown]
  - Arthralgia [Unknown]
  - Pain [Unknown]
  - Arthralgia [Unknown]
  - Hot flush [Not Recovered/Not Resolved]
  - Hypoaesthesia [Unknown]
  - Blood triglycerides increased [Unknown]
  - Cardiac fibrillation [Recovered/Resolved]
  - Adverse event [Not Recovered/Not Resolved]
